FAERS Safety Report 20806410 (Version 2)
Quarter: 2022Q2

REPORT INFORMATION
  Report Type: Spontaneous
  Country: US (occurrence: US)
  Receive Date: 20220510
  Receipt Date: 20220523
  Transmission Date: 20220720
  Serious: Yes (Other)
  Sender: FDA-Public Use
  Company Number: US-ALLERGAN-2210325US

PATIENT
  Sex: Female

DRUGS (1)
  1. VUITY [Suspect]
     Active Substance: PILOCARPINE HYDROCHLORIDE
     Indication: Product used for unknown indication

REACTIONS (5)
  - Vitreoretinal traction syndrome [Unknown]
  - Photopsia [Unknown]
  - Visual impairment [Unknown]
  - Vision blurred [Unknown]
  - Eye pain [Unknown]
